FAERS Safety Report 16382616 (Version 1)
Quarter: 2019Q2

REPORT INFORMATION
  Report Type: Spontaneous
  Country: FR (occurrence: FR)
  Receive Date: 20190603
  Receipt Date: 20190603
  Transmission Date: 20190711
  Serious: Yes (Hospitalization)
  Sender: FDA-Public Use
  Company Number: FR-SA-2019SA141903

PATIENT
  Age: 67 Year
  Sex: Male

DRUGS (2)
  1. XGEVA [Suspect]
     Active Substance: DENOSUMAB
     Indication: THYROID NEOPLASM
     Dosage: LAST ON INJECTION 25/04/2019
     Route: 058
     Dates: start: 20190301
  2. CAPRELSA [Suspect]
     Active Substance: VANDETANIB
     Indication: THYROID NEOPLASM
     Dosage: UNK UNK, UNK
     Route: 048
     Dates: start: 20190224, end: 20190426

REACTIONS (1)
  - Rash maculo-papular [Not Recovered/Not Resolved]

NARRATIVE: CASE EVENT DATE: 201903
